FAERS Safety Report 4302533-5 (Version None)
Quarter: 2004Q1

REPORT INFORMATION
  Report Type: 
  Country: None (occurrence: None)
  Receive Date: 20040220
  Receipt Date: 20030527
  Transmission Date: 20041129
  Serious: Yes (Other)
  Sender: FDA-Public Use
  Company Number: 430025P03USA

PATIENT
  Age: 49 Year
  Sex: Male
  Weight: 57 kg

DRUGS (1)
  1. NOVANTRONE [Suspect]
     Indication: MULTIPLE SCLEROSIS
     Dosage: 20 MG, 1 IN3 MONTHS, INTRAVENOUS
     Route: 042
     Dates: start: 20011009, end: 20021218

REACTIONS (1)
  - EJECTION FRACTION DECREASED [None]
